FAERS Safety Report 8473292-X (Version None)
Quarter: 2012Q2

REPORT INFORMATION
  Report Type: 
  Country: None (occurrence: None)
  Receive Date: 20120627
  Receipt Date: 20120622
  Transmission Date: 20120825
  Serious: Yes (Life-Threatening, Hospitalization)
  Sender: FDA-Public Use
  Company Number: DE-TEVA-342179GER

PATIENT
  Sex: Female
  Weight: 83 kg

DRUGS (11)
  1. LAPATINIB [Suspect]
     Indication: BREAST CANCER
     Dosage: 500 MILLIGRAM;
     Route: 048
     Dates: start: 20120314, end: 20120607
  2. ARANESP [Concomitant]
     Dates: start: 20120523
  3. DOXORUBICIN HCL [Suspect]
     Indication: BREAST CANCER
     Route: 042
     Dates: start: 20120314, end: 20120607
  4. PACLITAXEL [Suspect]
     Indication: BREAST CANCER
     Route: 042
     Dates: start: 20120314, end: 20120607
  5. RAMIPRIL 5/25 MG [Concomitant]
     Dosage: 1 TABLET;
     Dates: start: 20100317, end: 20120301
  6. VENLAFAXINE HYDROCHLORIDE [Concomitant]
     Dosage: 75 MILLIGRAM;
     Dates: start: 20120301
  7. TRASTUZUMAB [Suspect]
     Indication: BREAST CANCER
     Route: 042
     Dates: start: 20120314, end: 20120607
  8. METOPROLOL TARTRATE [Concomitant]
     Dosage: 71.25 MILLIGRAM;
     Dates: start: 20100317
  9. VENLAFAXINE HYDROCHLORIDE [Concomitant]
     Dosage: 37.5 MILLIGRAM;
     Dates: start: 20100317, end: 20120301
  10. CARBOPLATIN [Suspect]
     Indication: BREAST CANCER
     Route: 042
     Dates: start: 20120314, end: 20120607
  11. RAMIPRIL 2.5/12.5 MG [Concomitant]
     Dosage: 1 TABLET;
     Dates: start: 20120301

REACTIONS (1)
  - PANCYTOPENIA [None]
